FAERS Safety Report 4817010-2 (Version None)
Quarter: 2005Q4

REPORT INFORMATION
  Report Type: 
  Country: None (occurrence: None)
  Receive Date: 20051101
  Receipt Date: 20031030
  Transmission Date: 20060501
  Serious: Yes (Death)
  Sender: FDA-Public Use
  Company Number: PH-GLAXOSMITHKLINE-B0313521A

PATIENT
  Age: 70 Year
  Sex: Male
  Weight: 50 kg

DRUGS (3)
  1. ALBENDAZOLE [Suspect]
     Dosage: 1TAB SINGLE DOSE
     Dates: start: 20030730
  2. DIETHYLCARBAMAZINE CITRATE [Suspect]
     Dosage: 5TAB SINGLE DOSE
  3. SALBUTAMOL [Concomitant]

REACTIONS (2)
  - ASTHMA [None]
  - HYPERSENSITIVITY [None]
